FAERS Safety Report 4289952-0 (Version None)
Quarter: 2004Q1

REPORT INFORMATION
  Report Type: 
  Country: None (occurrence: None)
  Receive Date: 20040209
  Receipt Date: 20040129
  Transmission Date: 20041129
  Serious: Yes (Hospitalization)
  Sender: FDA-Public Use
  Company Number: PHNR2004AU00564

PATIENT
  Age: 78 Year
  Sex: Female

DRUGS (6)
  1. VOLTAREN [Suspect]
     Dosage: 2 DOSE UNSPECIFIED DAILY
     Dates: end: 20030315
  2. CELEBREX [Suspect]
     Dosage: 1 DOSE UNSPECIFIED DAILY
     Route: 048
  3. MODURETIC 5-50 [Suspect]
     Indication: CARDIAC FAILURE CONGESTIVE
     Dosage: 1 DOSE UNSPECIFIED DAILY
     Route: 048
     Dates: end: 20030315
  4. DAONIL [Suspect]
     Indication: DIABETES MELLITUS
     Dosage: .5 MG, QD
     Route: 048
     Dates: end: 20030315
  5. PAROXETINE HCL [Concomitant]
     Indication: DEPRESSION
     Dosage: 1 DOSE UNSPECIFIED DAILY
     Route: 048
  6. CARDIZEM CD [Concomitant]
     Indication: ANGINA PECTORIS
     Dosage: 240 MG, QD
     Route: 048

REACTIONS (3)
  - CONFUSIONAL STATE [None]
  - DEHYDRATION [None]
  - HYPOGLYCAEMIC COMA [None]
